FAERS Safety Report 19890362 (Version 1)
Quarter: 2021Q3

REPORT INFORMATION
  Report Type: Spontaneous
  Country: CN (occurrence: CN)
  Receive Date: 20210927
  Receipt Date: 20210927
  Transmission Date: 20211014
  Serious: Yes (Other)
  Sender: FDA-Public Use
  Company Number: CN-009507513-2109CHN005605

PATIENT
  Age: 58 Year
  Sex: Female
  Weight: 45 kg

DRUGS (5)
  1. TIENAM [Suspect]
     Active Substance: CILASTATIN SODIUM\IMIPENEM
     Indication: SYMPTOMATIC TREATMENT
     Dosage: 1 G, Q12H (TWICE DAILY)
     Route: 041
     Dates: start: 20210828, end: 20210830
  2. MEROPENEM. [Suspect]
     Active Substance: MEROPENEM
     Indication: ANTI-INFECTIVE THERAPY
     Dosage: UNK
     Dates: start: 20210830
  3. VORICONAZOLE. [Suspect]
     Active Substance: VORICONAZOLE
     Indication: SYMPTOMATIC TREATMENT
     Dosage: 0.2 G (0.4G FOR THE FIRST DOSE), Q12H (TWICE DAILY)
     Route: 048
     Dates: start: 20210828, end: 20210830
  4. HUI BANG LING [Suspect]
     Active Substance: VORICONAZOLE
     Indication: ANTI-INFECTIVE THERAPY
     Dosage: 200 MILLIGRAMS, TWICE DAILY, PUMP INJECTION
     Route: 042
     Dates: start: 20210830, end: 20210905
  5. TRAMADOL. [Concomitant]
     Active Substance: TRAMADOL
     Dosage: UNK
     Route: 048
     Dates: end: 20210830

REACTIONS (3)
  - Septic shock [Unknown]
  - Delirium [Unknown]
  - Dementia [Unknown]

NARRATIVE: CASE EVENT DATE: 20210830
